FAERS Safety Report 7827468-2 (Version None)
Quarter: 2011Q4

REPORT INFORMATION
  Report Type: 
  Country: None (occurrence: None)
  Receive Date: 20111020
  Receipt Date: 20111005
  Transmission Date: 20120403
  Serious: Yes (Hospitalization, Other)
  Sender: FDA-Public Use
  Company Number: JP-ROCHE-799012

PATIENT
  Sex: Female
  Weight: 52 kg

DRUGS (15)
  1. BEZATOL SR [Concomitant]
     Route: 048
     Dates: start: 20110202
  2. XELODA [Suspect]
     Indication: BREAST CANCER METASTATIC
     Dosage: NOTE: IT WAS ONE ADMINISTERING WEEKLY HOLIDAY MEDICINE FOR TWO WEEKS.
     Route: 048
  3. PYDOXAL [Suspect]
     Indication: PRODUCT USED FOR UNKNOWN INDICATION
     Route: 048
     Dates: start: 20100310
  4. BROTIZOLAM [Suspect]
     Indication: INSOMNIA
     Route: 048
     Dates: start: 20100408
  5. XELODA [Suspect]
     Dosage: IT WAS ONE ADMINISTERING WEEKLY HOLIDAY MEDICINE FOR TWO WEEKS.
     Route: 048
     Dates: start: 20100311, end: 20100512
  6. PRAVASTATIN SODIUM [Suspect]
     Indication: PRODUCT USED FOR UNKNOWN INDICATION
     Route: 048
     Dates: start: 20100310, end: 20110201
  7. XELODA [Suspect]
     Dosage: IT WAS ONE ADMINISTERING WEEKLY HOLIDAY MEDICINE FOR TWO WEEKS
     Route: 048
  8. SALOBEL [Concomitant]
     Route: 048
     Dates: start: 20110824
  9. HERCEPTIN [Suspect]
     Indication: BREAST CANCER METASTATIC
     Route: 041
     Dates: start: 20100407, end: 20100407
  10. ETHYL ICOSAPENTATE [Concomitant]
     Route: 048
     Dates: start: 20110824
  11. XELODA [Suspect]
     Dosage: IT WAS ONE ADMINISTERING WEEKLY HOLIDAY MEDICINE FOR TWO WEEKS
     Route: 048
     Dates: start: 20100630, end: 20110425
  12. HERCEPTIN [Suspect]
     Dosage: REST BY ADMINISTERING 2W A WEEK
     Route: 041
     Dates: start: 20100401
  13. ZETIA [Concomitant]
     Route: 048
     Dates: start: 20110223
  14. HERCEPTIN [Suspect]
     Dates: start: 20101004
  15. GLYCYRON [Suspect]
     Indication: PRODUCT USED FOR UNKNOWN INDICATION
     Route: 048

REACTIONS (2)
  - HYPERTRIGLYCERIDAEMIA [None]
  - HYPERURICAEMIA [None]
